FAERS Safety Report 20420404 (Version 1)
Quarter: 2022Q1

REPORT INFORMATION
  Report Type: Report from Study
  Country: JP (occurrence: JP)
  Receive Date: 20220203
  Receipt Date: 20220203
  Transmission Date: 20220423
  Serious: Yes (Death, Hospitalization, Other)
  Sender: FDA-Public Use
  Company Number: JP-KYOWAKIRIN-2019AKK017376

PATIENT
  Age: 79 Year
  Sex: Male

DRUGS (62)
  1. DARBEPOETIN ALFA [Suspect]
     Active Substance: DARBEPOETIN ALFA
     Indication: Myelodysplastic syndrome
     Dosage: 240 MICROGRAM
     Route: 058
     Dates: start: 20200930, end: 20200930
  2. DARBEPOETIN ALFA [Suspect]
     Active Substance: DARBEPOETIN ALFA
     Dosage: 240 MILLIGRAM, QWK
     Route: 058
     Dates: start: 20180802, end: 20180920
  3. DARBEPOETIN ALFA [Suspect]
     Active Substance: DARBEPOETIN ALFA
     Dosage: 240 MICROGRAM, Q2WK
     Route: 058
     Dates: start: 20181004, end: 20181129
  4. DARBEPOETIN ALFA [Suspect]
     Active Substance: DARBEPOETIN ALFA
     Dosage: 240 MILLIGRAM
     Route: 058
     Dates: start: 20181223, end: 20181223
  5. DARBEPOETIN ALFA [Suspect]
     Active Substance: DARBEPOETIN ALFA
     Dosage: 240 MILLIGRAM, QWK
     Route: 058
     Dates: start: 20190104, end: 20190926
  6. WARFARIN [Suspect]
     Active Substance: WARFARIN
     Indication: Atrial fibrillation
     Dosage: UNK
     Route: 048
     Dates: end: 202012
  7. ASPIRIN [Suspect]
     Active Substance: ASPIRIN
     Indication: Product used for unknown indication
     Dosage: UNK
     Route: 048
     Dates: end: 202012
  8. DOBUTAMINE HYDROCHLORIDE [Concomitant]
     Active Substance: DOBUTAMINE HYDROCHLORIDE
     Indication: Cardiac failure chronic
     Dosage: UNK
     Route: 042
     Dates: start: 20200227, end: 20200303
  9. METILDIGOXIN [Concomitant]
     Active Substance: METILDIGOXIN
     Dosage: UNK
     Route: 048
     Dates: end: 20191124
  10. FUROSEMIDE [Concomitant]
     Active Substance: FUROSEMIDE
     Indication: Cardiac failure chronic
     Dosage: UNK
     Route: 048
     Dates: end: 20191009
  11. FUROSEMIDE [Concomitant]
     Active Substance: FUROSEMIDE
     Indication: Cardiac failure chronic
     Dosage: UNK
     Route: 048
     Dates: start: 20200302, end: 202012
  12. BISOPROLOL FUMARATE [Concomitant]
     Active Substance: BISOPROLOL FUMARATE
     Dosage: UNK
     Route: 048
     Dates: end: 20191124
  13. BISOPROLOL FUMARATE [Concomitant]
     Active Substance: BISOPROLOL FUMARATE
     Dosage: UNK
     Route: 048
     Dates: start: 20191124, end: 202012
  14. LEVOTHYROXINE SODIUM [Concomitant]
     Active Substance: LEVOTHYROXINE SODIUM
     Indication: Hypothyroidism
     Dosage: UNK
     Route: 048
     Dates: end: 202012
  15. FAMOTIDINE [Concomitant]
     Active Substance: FAMOTIDINE
     Dosage: UNK
     Route: 048
     Dates: end: 20190110
  16. TEPRENONE [Concomitant]
     Active Substance: TEPRENONE
     Dosage: UNK
     Route: 048
     Dates: end: 201911
  17. MAGNESIUM OXIDE [Concomitant]
     Active Substance: MAGNESIUM OXIDE
     Indication: Constipation
     Dosage: UNK
     Route: 048
     Dates: end: 20191110
  18. PURSENNIDE [SENNOSIDE A+B CALCIUM] [Concomitant]
     Indication: Constipation
     Dosage: UNK
     Route: 048
     Dates: end: 20191110
  19. FEBUXOSTAT [Concomitant]
     Active Substance: FEBUXOSTAT
     Indication: Hyperuricaemia
     Dosage: UNK
     Route: 048
     Dates: start: 20180809, end: 20200907
  20. PL [Concomitant]
     Active Substance: ACETAMINOPHEN\CAFFEINE\PROMETHAZINE\SALICYLAMIDE
     Dosage: UNK
     Route: 048
     Dates: start: 20190124, end: 20190130
  21. POPIDON [Concomitant]
     Dosage: UNK
     Route: 049
     Dates: start: 20190124, end: 20190417
  22. BEPOTASTINE BESYLATE [Concomitant]
     Active Substance: BEPOTASTINE BESYLATE
     Indication: Seasonal allergy
     Dosage: UNK
     Route: 048
     Dates: start: 20190404, end: 20190508
  23. NEXIUM [ESOMEPRAZOLE MAGNESIUM TRIHYDRATE] [Concomitant]
     Dosage: UNK
     Route: 048
     Dates: start: 20190111, end: 201911
  24. CELECOXIB [Concomitant]
     Active Substance: CELECOXIB
     Dosage: UNK
     Route: 048
     Dates: start: 20190509, end: 20190522
  25. SPIRONOLACTONE [Concomitant]
     Active Substance: SPIRONOLACTONE
     Indication: Cardiac failure chronic
     Dosage: UNK
     Route: 048
     Dates: start: 20191010, end: 202012
  26. AZOSEMIDE [Concomitant]
     Active Substance: AZOSEMIDE
     Indication: Cardiac failure chronic
     Dosage: UNK
     Route: 048
     Dates: start: 20191017, end: 202012
  27. SAMSCA [Concomitant]
     Active Substance: TOLVAPTAN
     Indication: Cardiac failure chronic
     Dosage: UNK
     Route: 048
     Dates: start: 20191017, end: 20200530
  28. SAMSCA [Concomitant]
     Active Substance: TOLVAPTAN
     Dosage: UNK
     Route: 048
     Dates: start: 20201028, end: 20201230
  29. METHYLCOBALAMIN [Concomitant]
     Active Substance: METHYLCOBALAMIN
     Dosage: UNK
     Route: 048
     Dates: end: 20191007
  30. METHYLCOBALAMIN [Concomitant]
     Active Substance: METHYLCOBALAMIN
     Dosage: UNK
     Route: 048
     Dates: start: 20191008, end: 201911
  31. CALONAL [Concomitant]
     Active Substance: ACETAMINOPHEN
     Indication: Chondrocalcinosis pyrophosphate
     Dosage: UNK
     Route: 048
     Dates: start: 20191003, end: 20191110
  32. CALONAL [Concomitant]
     Active Substance: ACETAMINOPHEN
     Dosage: UNK
     Route: 048
     Dates: start: 20200305, end: 202012
  33. CALONAL [Concomitant]
     Active Substance: ACETAMINOPHEN
     Dosage: UNK
     Route: 048
     Dates: start: 20200703, end: 202012
  34. POSTERISAN [ESCHERICHIA COLI] [Concomitant]
     Indication: Haemorrhoids
     Dosage: UNK
     Route: 061
     Dates: start: 20191202, end: 201912
  35. ROSUVASTATIN [Concomitant]
     Active Substance: ROSUVASTATIN
     Indication: Prophylaxis
     Dosage: UNK
     Route: 048
     Dates: start: 20200229, end: 202012
  36. PIMOBENDAN [Concomitant]
     Active Substance: PIMOBENDAN
     Indication: Atrial flutter
     Dosage: UNK
     Route: 048
     Dates: start: 20200229, end: 20200518
  37. PIMOBENDAN [Concomitant]
     Active Substance: PIMOBENDAN
     Indication: Atrial fibrillation
     Dosage: UNK
     Route: 048
     Dates: start: 20191210, end: 202007
  38. PIMOBENDAN [Concomitant]
     Active Substance: PIMOBENDAN
     Indication: Cardiac failure chronic
     Dosage: UNK
  39. DIGOXIN [Concomitant]
     Active Substance: DIGOXIN
     Indication: Atrial flutter
     Dosage: UNK
     Route: 048
     Dates: start: 20200229, end: 20200518
  40. DIGOXIN [Concomitant]
     Active Substance: DIGOXIN
     Indication: Atrial fibrillation
     Dosage: UNK
  41. BISOPROLOL [Concomitant]
     Active Substance: BISOPROLOL
     Indication: Atrial flutter
     Dosage: UNK
     Dates: end: 2020
  42. BISOPROLOL [Concomitant]
     Active Substance: BISOPROLOL
     Indication: Atrial fibrillation
     Dosage: UNK
  43. FLAGYL [Concomitant]
     Active Substance: METRONIDAZOLE\METRONIDAZOLE HYDROCHLORIDE
     Indication: Clostridium test positive
     Dosage: UNK
     Route: 048
     Dates: start: 20200315, end: 20200325
  44. KETOPROFEN [Concomitant]
     Active Substance: KETOPROFEN
     Indication: Chondrocalcinosis pyrophosphate
     Dosage: UNK
     Dates: start: 20200401, end: 202004
  45. CALCIUM POLYSTYRENE SULFONATE [Concomitant]
     Active Substance: CALCIUM POLYSTYRENE SULFONATE
     Indication: Hyperkalaemia
     Dosage: UNK
     Route: 048
     Dates: start: 20191026, end: 20191030
  46. CEFMETAZOLE [Concomitant]
     Active Substance: CEFMETAZOLE
     Indication: Pneumonia
     Dosage: UNK
     Route: 042
     Dates: start: 20190929, end: 20190929
  47. CEFTRIAXONE SODIUM [Concomitant]
     Active Substance: CEFTRIAXONE SODIUM
     Indication: Pneumonia
     Dosage: UNK
     Route: 042
     Dates: start: 20190930, end: 20191002
  48. LASIX [Concomitant]
     Active Substance: FUROSEMIDE
     Indication: Cardiac failure chronic
     Dosage: UNK
     Route: 065
     Dates: start: 20190929, end: 20191107
  49. LASIX [Concomitant]
     Active Substance: FUROSEMIDE
     Dosage: UNK
     Route: 065
     Dates: start: 20201223, end: 20201223
  50. LASIX [Concomitant]
     Active Substance: FUROSEMIDE
     Dosage: UNK
     Route: 065
     Dates: start: 20201225, end: 20201228
  51. LASIX [Concomitant]
     Active Substance: FUROSEMIDE
     Dosage: UNK
     Route: 065
     Dates: start: 20201230, end: 20201230
  52. MIRCERA [Concomitant]
     Active Substance: METHOXY POLYETHYLENE GLYCOL-EPOETIN BETA
     Indication: Nephrogenic anaemia
     Dosage: UNK
     Route: 065
     Dates: start: 20200303, end: 20200303
  53. MIRCERA [Concomitant]
     Active Substance: METHOXY POLYETHYLENE GLYCOL-EPOETIN BETA
     Dosage: UNK
     Route: 065
     Dates: start: 20200317, end: 20200317
  54. MIRCERA [Concomitant]
     Active Substance: METHOXY POLYETHYLENE GLYCOL-EPOETIN BETA
     Dosage: UNK
     Route: 065
     Dates: start: 20200331, end: 20200331
  55. DEPO-MEDROL [Concomitant]
     Active Substance: METHYLPREDNISOLONE ACETATE
     Indication: Chondrocalcinosis pyrophosphate
     Dosage: UNK
     Route: 065
     Dates: start: 20200313, end: 20200313
  56. XYLOCAINE [Concomitant]
     Active Substance: LIDOCAINE HYDROCHLORIDE
     Indication: Chondrocalcinosis pyrophosphate
     Dosage: UNK
     Route: 065
     Dates: start: 20200313, end: 20200313
  57. SENNOSIDES A AND B [Concomitant]
     Active Substance: SENNOSIDES A AND B
     Indication: Constipation
     Dosage: UNK
     Route: 048
     Dates: start: 20200703, end: 202012
  58. NIZORAL [Concomitant]
     Active Substance: KETOCONAZOLE
     Indication: Seborrhoeic dermatitis
     Dosage: UNK
     Route: 061
     Dates: start: 202002, end: 202002
  59. PETROLATUM [Concomitant]
     Active Substance: PETROLATUM
     Indication: Eczema asteatotic
     Dosage: UNK
     Route: 061
     Dates: start: 202002, end: 2020
  60. CLOBETASOL [Concomitant]
     Active Substance: CLOBETASOL
     Indication: Eczema asteatotic
     Dosage: UNK
     Route: 061
     Dates: start: 202002, end: 2020
  61. VONOPRAZAN FUMARATE [Concomitant]
     Active Substance: VONOPRAZAN FUMARATE
     Dosage: UNK
     Route: 048
     Dates: start: 20200228, end: 20200930
  62. REBAMIPIDE [Concomitant]
     Active Substance: REBAMIPIDE
     Dosage: UNK
     Route: 048
     Dates: start: 20201001, end: 202012

REACTIONS (26)
  - Cardiac failure congestive [Fatal]
  - Disease progression [Fatal]
  - Melaena [Recovered/Resolved]
  - Cardiac failure [Recovered/Resolved]
  - Pneumonia [Recovered/Resolved]
  - Mitral valve incompetence [Recovered/Resolved]
  - Large intestinal haemorrhage [Recovered/Resolved]
  - Gastrointestinal angiectasia [Recovered/Resolved]
  - Clostridium difficile infection [Recovered/Resolved]
  - Cardiac failure [Recovering/Resolving]
  - Rib fracture [Recovered/Resolved]
  - Rib fracture [Recovered/Resolved]
  - Rib fracture [Recovered/Resolved]
  - Rib fracture [Recovered/Resolved]
  - Large intestinal haemorrhage [Recovered/Resolved]
  - Nephrogenic anaemia [Recovering/Resolving]
  - Fall [Recovered/Resolved]
  - Clostridium difficile infection [Recovered/Resolved]
  - Atrial flutter [Recovering/Resolving]
  - Atrial fibrillation [Recovering/Resolving]
  - Hyperkalaemia [Recovered/Resolved]
  - Nasopharyngitis [Recovered/Resolved]
  - Chondrocalcinosis pyrophosphate [Recovering/Resolving]
  - Haemorrhoidal haemorrhage [Recovered/Resolved]
  - Seborrhoeic dermatitis [Recovering/Resolving]
  - Eczema asteatotic [Recovering/Resolving]

NARRATIVE: CASE EVENT DATE: 20181223
